FAERS Safety Report 17203631 (Version 1)
Quarter: 2019Q4

REPORT INFORMATION
  Report Type: Spontaneous
  Country: US (occurrence: US)
  Receive Date: 20191226
  Receipt Date: 20191226
  Transmission Date: 20200122
  Serious: Yes (Other)
  Sender: FDA-Public Use
  Company Number: US-MYLANLABS-2019M1128183

PATIENT
  Age: 16 Year
  Sex: Male

DRUGS (1)
  1. VALPROIC ACID. [Suspect]
     Active Substance: VALPROIC ACID
     Indication: EPILEPSY
     Dosage: EXTENDED-RELEASE TABLETS AT BEDTIME
     Route: 048

REACTIONS (4)
  - Seizure [Recovered/Resolved]
  - Herbal interaction [Recovered/Resolved]
  - Anticonvulsant drug level decreased [Recovered/Resolved]
  - Inhibitory drug interaction [Recovered/Resolved]

NARRATIVE: CASE EVENT DATE: 201401
